FAERS Safety Report 14699050 (Version 2)
Quarter: 2018Q2

REPORT INFORMATION
  Report Type: Spontaneous
  Country: US (occurrence: US)
  Receive Date: 20180330
  Receipt Date: 20180418
  Transmission Date: 20180711
  Serious: Yes (Death, Life-Threatening, Other)
  Sender: FDA-Public Use
  Company Number: US-BRISTOL-MYERS SQUIBB COMPANY-BMS-2018-029678

PATIENT
  Sex: Male

DRUGS (4)
  1. DABRAFENIB [Concomitant]
     Active Substance: DABRAFENIB
     Indication: PRODUCT USED FOR UNKNOWN INDICATION
     Route: 065
  2. TRAMETINIB [Concomitant]
     Active Substance: TRAMETINIB
     Indication: PRODUCT USED FOR UNKNOWN INDICATION
     Route: 065
  3. OPDIVO [Suspect]
     Active Substance: NIVOLUMAB
     Indication: MALIGNANT MELANOMA
     Dosage: 240 MG, Q2WK
     Route: 042
     Dates: end: 20180205
  4. ONDANSETRON [Concomitant]
     Active Substance: ONDANSETRON
     Indication: PRODUCT USED FOR UNKNOWN INDICATION
     Route: 065

REACTIONS (1)
  - Malignant neoplasm progression [Fatal]
